FAERS Safety Report 17137698 (Version 1)
Quarter: 2019Q4

REPORT INFORMATION
  Report Type: Spontaneous
  Country: US (occurrence: US)
  Receive Date: 20191211
  Receipt Date: 20191211
  Transmission Date: 20200122
  Serious: Yes (Other)
  Sender: FDA-Public Use
  Company Number: US-DRREDDYS-USA/USA/19/0116973

PATIENT
  Sex: Male

DRUGS (1)
  1. ZENATANE [Suspect]
     Active Substance: ISOTRETINOIN
     Indication: PRODUCT USED FOR UNKNOWN INDICATION
     Dosage: RMA ISSUE DATES WERE  NOTED AS 15-AUG-2019, 16-SEP-2019, 29-OCT-2019
     Route: 048

REACTIONS (3)
  - Feeling abnormal [Unknown]
  - Depression [Unknown]
  - Arthralgia [Unknown]
